FAERS Safety Report 9494403 (Version 1)
Quarter: 2013Q3

REPORT INFORMATION
  Report Type: Spontaneous
  Country: US (occurrence: None)
  Receive Date: 20130828
  Receipt Date: 20130828
  Transmission Date: 20140515
  Serious: Yes (Death)
  Sender: FDA-Public Use
  Company Number: MAJOR #2013279

PATIENT
  Age: 66 Year
  Sex: Female

DRUGS (2)
  1. ACETAMINOPHEN [Suspect]
     Indication: HEADACHE
     Dosage: ONE CAPLET
     Route: 048
     Dates: start: 20130627
  2. LIDOCAINE [Concomitant]

REACTIONS (5)
  - Wrong drug administered [None]
  - Muscle spasms [None]
  - Dyspnoea [None]
  - Blood pressure systolic increased [None]
  - Respiratory rate increased [None]
